FAERS Safety Report 5845081-3 (Version None)
Quarter: 2008Q3

REPORT INFORMATION
  Report Type: 
  Country: None (occurrence: None)
  Receive Date: 20080813
  Receipt Date: 20080813
  Transmission Date: 20090109
  Serious: Yes (Hospitalization, Other)
  Sender: FDA-Public Use
  Company Number: None

PATIENT
  Weight: 104.3273 kg

DRUGS (2)
  1. CLEOCIN [Suspect]
     Indication: PNEUMONIA
     Dosage: BID IV DRIP
     Route: 041
     Dates: start: 20070720, end: 20070812
  2. FELDENE [Suspect]
     Indication: ARTHRALGIA
     Dosage: CAPSULE DAILY PO   TOOK 4 TIMES 1980'S
     Route: 048
     Dates: start: 19800101

REACTIONS (4)
  - DIARRHOEA [None]
  - NAUSEA [None]
  - STEVENS-JOHNSON SYNDROME [None]
  - VOMITING [None]
